FAERS Safety Report 10049339 (Version 2)
Quarter: 2015Q1

REPORT INFORMATION
  Report Type: Spontaneous
  Country: IN (occurrence: IN)
  Receive Date: 20140401
  Receipt Date: 20150316
  Transmission Date: 20150720
  Serious: Yes (Other)
  Sender: FDA-Public Use
  Company Number: IN-009507513-1403IND014610

PATIENT
  Sex: Male

DRUGS (1)
  1. JANUMET [Suspect]
     Active Substance: METFORMIN HYDROCHLORIDE\SITAGLIPTIN PHOSPHATE
     Indication: DIABETES MELLITUS
     Dosage: 1X/DAY
     Route: 048

REACTIONS (5)
  - Polydipsia [Not Recovered/Not Resolved]
  - Inappropriate schedule of drug administration [Unknown]
  - Peripheral swelling [Not Recovered/Not Resolved]
  - Varicella [Not Recovered/Not Resolved]
  - Pollakiuria [Not Recovered/Not Resolved]
